FAERS Safety Report 4121701 (Version 3)
Quarter: 2015Q2

REPORT INFORMATION
  Report Type: Spontaneous
  Country: JP (occurrence: JP)
  Receive Date: 20040408
  Receipt Date: 20150428
  Transmission Date: 20150821
  Serious: Yes (Disabling)
  Sender: FDA-Public Use
  Company Number: PHBS2004JP04437

PATIENT
  Age: 21 Year
  Sex: Female
  Weight: 40 kg

DRUGS (5)
  1. LOXONIN [Suspect]
     Active Substance: LOXOPROFEN SODIUM
     Indication: PYREXIA
     Dosage: 60 MG, UNK
     Route: 048
     Dates: start: 19980126, end: 19980715
  2. PREDONINE [Concomitant]
     Active Substance: PREDNISOLONE\PREDNISOLONE ACETATE\PREDNISOLONE SODIUM SUCCINATE
     Dosage: 25 UNK, UNK
     Route: 048
     Dates: start: 19980412
  3. VOLTAREN [Suspect]
     Active Substance: DICLOFENAC SODIUM
     Indication: PYREXIA
     Dosage: 50 MG, UNK
     Route: 054
     Dates: start: 19980120, end: 19980715
  4. PREDONINE [Concomitant]
     Active Substance: PREDNISOLONE\PREDNISOLONE ACETATE\PREDNISOLONE SODIUM SUCCINATE
     Indication: PRODUCT USED FOR UNKNOWN INDICATION
     Dosage: 30 MG, QD
     Route: 048
     Dates: start: 19980223
  5. PREDONINE [Concomitant]
     Active Substance: PREDNISOLONE\PREDNISOLONE ACETATE\PREDNISOLONE SODIUM SUCCINATE
     Dosage: 10 MG, QD
     Route: 048
     Dates: start: 19980710

REACTIONS (10)
  - Oculomucocutaneous syndrome [Recovered/Resolved with Sequelae]
  - Visual impairment [Recovered/Resolved with Sequelae]
  - Genital ulceration [Unknown]
  - Pyrexia [Unknown]
  - Dry eye [Unknown]
  - Subacute cutaneous lupus erythematosus [Unknown]
  - Stevens-Johnson syndrome [Recovered/Resolved with Sequelae]
  - Oropharyngeal pain [Unknown]
  - Erythema multiforme [Unknown]
  - Eye pain [Unknown]

NARRATIVE: CASE EVENT DATE: 19980714
